FAERS Safety Report 8006604-1 (Version None)
Quarter: 2011Q4

REPORT INFORMATION
  Report Type: 
  Country: None (occurrence: None)
  Receive Date: 20111227
  Receipt Date: 20110926
  Transmission Date: 20120403
  Serious: No
  Sender: FDA-Public Use
  Company Number: US-BAYER-2011-091152

PATIENT
  Sex: Male

DRUGS (2)
  1. AVELOX [Suspect]
  2. PREDNISONE TAB [Concomitant]

REACTIONS (2)
  - JOINT SWELLING [None]
  - ARTHRALGIA [None]
